FAERS Safety Report 18911123 (Version 1)
Quarter: 2021Q1

REPORT INFORMATION
  Report Type: Spontaneous
  Country: US (occurrence: US)
  Receive Date: 20210218
  Receipt Date: 20210218
  Transmission Date: 20210420
  Serious: Yes (Hospitalization, Other)
  Sender: FDA-Public Use
  Company Number: US-GILEAD-2021-0517674

PATIENT

DRUGS (1)
  1. YESCARTA [Suspect]
     Active Substance: AXICABTAGENE CILOLEUCEL
     Indication: PRODUCT USED FOR UNKNOWN INDICATION
     Dosage: UNK
     Route: 042
     Dates: start: 20201214, end: 20201214

REACTIONS (4)
  - Mental impairment [Unknown]
  - Pupillary reflex impaired [Unknown]
  - Brain oedema [Unknown]
  - Leukoencephalopathy [Unknown]

NARRATIVE: CASE EVENT DATE: 20201229
